FAERS Safety Report 8269096-3 (Version None)
Quarter: 2012Q2

REPORT INFORMATION
  Report Type: 
  Country: None (occurrence: None)
  Receive Date: 20120409
  Receipt Date: 20120401
  Transmission Date: 20120825
  Serious: No
  Sender: FDA-Public Use
  Company Number: US-B.I. PHARMACEUTICALS,INC./RIDGEFIELD-2012-BP-06133BP

PATIENT
  Age: 69 Year
  Sex: Female

DRUGS (1)
  1. PRADAXA [Suspect]

REACTIONS (1)
  - ALOPECIA [None]
